FAERS Safety Report 4692338-8 (Version None)
Quarter: 2005Q2

REPORT INFORMATION
  Report Type: 
  Country: None (occurrence: None)
  Receive Date: 20050614
  Receipt Date: 20050531
  Transmission Date: 20051028
  Serious: Yes (Other)
  Sender: FDA-Public Use
  Company Number: L05-JPN-02040-01

PATIENT

DRUGS (1)
  1. CARBAMAZEPINE [Suspect]

REACTIONS (1)
  - ONYCHOMADESIS [None]
